FAERS Safety Report 16170407 (Version 2)
Quarter: 2019Q2

REPORT INFORMATION
  Report Type: Spontaneous
  Country: US (occurrence: US)
  Receive Date: 20190408
  Receipt Date: 20190626
  Transmission Date: 20190711
  Serious: No
  Sender: FDA-Public Use
  Company Number: US-GLAXOSMITHKLINE-US2019061739

PATIENT
  Sex: Female

DRUGS (2)
  1. EXCEDRIN MIGRAINE [Suspect]
     Active Substance: ACETAMINOPHEN\ASPIRIN\CAFFEINE
     Indication: MIGRAINE
     Dosage: 1 DF, UNK
  2. ADVIL [Suspect]
     Active Substance: IBUPROFEN
     Indication: MIGRAINE
     Dosage: UNK

REACTIONS (2)
  - Drug ineffective [Unknown]
  - Underdose [Unknown]
